FAERS Safety Report 5068557-8 (Version None)
Quarter: 2006Q3

REPORT INFORMATION
  Report Type: 
  Country: None (occurrence: None)
  Receive Date: 20060802
  Receipt Date: 20051128
  Transmission Date: 20061208
  Serious: Yes (Hospitalization)
  Sender: FDA-Public Use
  Company Number: US-BRISTOL-MYERS SQUIBB COMPANY-13197066

PATIENT
  Age: 60 Year
  Sex: Male

DRUGS (7)
  1. COUMADIN [Suspect]
     Dates: start: 20050301
  2. STARLIX [Concomitant]
     Route: 048
  3. GLUCOPHAGE [Concomitant]
     Route: 048
  4. DIOVAN [Concomitant]
  5. PRAVACHOL [Concomitant]
  6. LEXAPRO [Concomitant]
  7. TOPROL-XL [Concomitant]

REACTIONS (2)
  - DRUG DISPENSING ERROR [None]
  - THROMBOSIS [None]
